FAERS Safety Report 16559965 (Version 2)
Quarter: 2019Q4

REPORT INFORMATION
  Report Type: Spontaneous
  Country: DE (occurrence: DE)
  Receive Date: 20190711
  Receipt Date: 20191105
  Transmission Date: 20200122
  Serious: Yes (Hospitalization)
  Sender: FDA-Public Use
  Company Number: DE-MYLANLABS-2019M1063247

PATIENT
  Age: 45 Year
  Sex: Male
  Weight: 112 kg

DRUGS (9)
  1. METHOTREXATE. [Suspect]
     Active Substance: METHOTREXATE
     Indication: CROHN^S DISEASE
     Dosage: 15 MG, QD
     Route: 065
     Dates: end: 20181113
  2. FLIXABI [Suspect]
     Active Substance: INFLIXIMAB
     Dosage: 1100 MG,  EVERY FOUR WEEKS
     Dates: start: 20181008, end: 20181106
  3. PREDNISOLONE                       /00016204/ [Suspect]
     Active Substance: PREDNISOLONE
     Indication: CROHN^S DISEASE
     Dosage: 10 MG, QD
     Route: 065
     Dates: end: 20181113
  4. NOVALGIN (METAMIZOLE SODIUM) [Concomitant]
     Active Substance: METAMIZOLE SODIUM
     Indication: PAIN
     Dosage: 500 MILLIGRAM, PRN
     Route: 065
  5. MIRTAZAPINE. [Concomitant]
     Active Substance: MIRTAZAPINE
     Indication: DEPRESSION
     Dosage: 30 MG, QD
     Route: 065
  6. PANTOPRAZOLE [Concomitant]
     Active Substance: PANTOPRAZOLE
     Indication: GASTRIC DISORDER
     Dosage: 40 MG, QD
     Route: 065
  7. MESALAZINE [Suspect]
     Active Substance: MESALAMINE
     Indication: CROHN^S DISEASE
     Dosage: 1000 MG, BID; (2-0-2)
     Route: 065
  8. FLIXABI [Suspect]
     Active Substance: INFLIXIMAB
     Indication: CROHN^S DISEASE
     Dosage: 1100 MG, EVERY FOUR WEEKS
     Route: 065
     Dates: start: 20180831, end: 20181106
  9. FLIXABI [Suspect]
     Active Substance: INFLIXIMAB
     Dosage: 1100 MG, EVERY FOUR WEEKS
     Route: 065
     Dates: start: 20181106, end: 20181106

REACTIONS (1)
  - Ileus [Recovered/Resolved]

NARRATIVE: CASE EVENT DATE: 20181110
